FAERS Safety Report 5234652-3 (Version None)
Quarter: 2007Q1

REPORT INFORMATION
  Report Type: 
  Country: None (occurrence: None)
  Receive Date: 20070209
  Receipt Date: 20070129
  Transmission Date: 20070707
  Serious: Yes (Hospitalization)
  Sender: FDA-Public Use
  Company Number: US-ELI_LILLY_AND_COMPANY-US200702000144

PATIENT
  Sex: Female

DRUGS (1)
  1. LISPRO [Suspect]
     Dosage: UNK, UNK
     Route: 064
     Dates: start: 20060101, end: 20060920

REACTIONS (4)
  - DRUG EXPOSURE DURING PREGNANCY [None]
  - DRUG EXPOSURE VIA BREAST MILK [None]
  - JAUNDICE NEONATAL [None]
  - WEIGHT DECREASE NEONATAL [None]
